FAERS Safety Report 21026990 (Version 2)
Quarter: 2022Q3

REPORT INFORMATION
  Report Type: Spontaneous
  Country: PT (occurrence: PT)
  Receive Date: 20220630
  Receipt Date: 20220712
  Transmission Date: 20221027
  Serious: Yes (Hospitalization, Other)
  Sender: FDA-Public Use
  Company Number: PT-Accord-267519

PATIENT
  Age: 58 Year
  Sex: Male

DRUGS (2)
  1. CARBOPLATIN [Suspect]
     Active Substance: CARBOPLATIN
     Indication: Bladder transitional cell carcinoma stage IV
     Dosage: CHANGED TO 200MG IN JAN-2018
     Dates: start: 201712, end: 201801
  2. GEMCITABINE [Suspect]
     Active Substance: GEMCITABINE
     Indication: Bladder transitional cell carcinoma stage IV
     Dosage: CHANGED TO 200MG IN JAN-2018
     Dates: start: 201712, end: 201801

REACTIONS (4)
  - Off label use [Unknown]
  - Renal tubular necrosis [Recovered/Resolved]
  - Acute kidney injury [Recovered/Resolved]
  - Drug intolerance [Unknown]
